FAERS Safety Report 5420178-0 (Version None)
Quarter: 2007Q3

REPORT INFORMATION
  Report Type: 
  Country: None (occurrence: None)
  Receive Date: 20070820
  Receipt Date: 20070816
  Transmission Date: 20080115
  Serious: No
  Sender: FDA-Public Use
  Company Number: US-BOEHRINGER INGELHEIM PHARMACEUTICALS, INC.-2007-BP-03207BP

PATIENT
  Sex: Female

DRUGS (1)
  1. CLONIDINE HCL [Suspect]

REACTIONS (2)
  - BLOOD PRESSURE INCREASED [None]
  - SOMNOLENCE [None]
